FAERS Safety Report 8170042-1 (Version None)
Quarter: 2012Q1

REPORT INFORMATION
  Report Type: 
  Country: None (occurrence: None)
  Receive Date: 20120104
  Receipt Date: 20111121
  Transmission Date: 20120608
  Serious: No
  Sender: FDA-Public Use
  Company Number: 2011HGS-002849

PATIENT
  Age: 60 Year
  Sex: Female
  Weight: 86.1834 kg

DRUGS (9)
  1. CELEBREX [Concomitant]
  2. ASPIRIN [Concomitant]
  3. TRAMADOL (TRAMADOL) (ULTRAM) [Concomitant]
  4. CLARITIN (LORATADINE) (LOTRADINE) [Concomitant]
  5. BENLYSTA [Suspect]
     Indication: SYSTEMIC LUPUS ERYTHEMATOSUS
     Dosage: 1 IN 28 D
  6. SYNTHROID (LEVOTHYROXINE SODIUM) (LEVOTHYROXINE SODIUM) [Concomitant]
  7. PRAVACHOL [Concomitant]
  8. FAMOTIDINE [Concomitant]
  9. MAXZIDE [Concomitant]

REACTIONS (3)
  - PRURITUS [None]
  - MYALGIA [None]
  - DRUG INEFFECTIVE [None]
